FAERS Safety Report 8614834-0 (Version None)
Quarter: 2012Q3

REPORT INFORMATION
  Report Type: 
  Country: None (occurrence: None)
  Receive Date: 20120823
  Receipt Date: 20120814
  Transmission Date: 20120928
  Serious: Yes (Other)
  Sender: FDA-Public Use
  Company Number: US-PFIZER INC-2012197583

PATIENT
  Age: 36 Year
  Sex: Female
  Weight: 64.399 kg

DRUGS (2)
  1. LYRICA [Suspect]
     Dosage: 1200 MG, 1X/DAY (8400 MG IN A WEEK)
     Route: 048
     Dates: end: 20120801
  2. LYRICA [Suspect]
     Indication: NEURALGIA
     Dosage: 75 MG, 2X/DAY
     Route: 048

REACTIONS (7)
  - MAJOR DEPRESSION [None]
  - ANXIETY [None]
  - AFFECTIVE DISORDER [None]
  - ABNORMAL BEHAVIOUR [None]
  - SUICIDAL IDEATION [None]
  - OVERDOSE [None]
  - NERVOUSNESS [None]
